FAERS Safety Report 8563786-0 (Version None)
Quarter: 2012Q3

REPORT INFORMATION
  Report Type: 
  Country: None (occurrence: None)
  Receive Date: 20120803
  Receipt Date: 20120724
  Transmission Date: 20120928
  Serious: No
  Sender: FDA-Public Use
  Company Number: US-009507513-1207USA009573

PATIENT

DRUGS (3)
  1. WELLBUTRIN XL [Concomitant]
  2. ATIVAN [Concomitant]
  3. PROPECIA [Suspect]
     Indication: ALOPECIA
     Dosage: 1 MG, QD
     Route: 048
     Dates: start: 20090301, end: 20120724

REACTIONS (4)
  - PELVIC DISCOMFORT [None]
  - EJACULATION DISORDER [None]
  - RETROGRADE EJACULATION [None]
  - ERECTILE DYSFUNCTION [None]
